FAERS Safety Report 6767960-5 (Version None)
Quarter: 2010Q2

REPORT INFORMATION
  Report Type: 
  Country: None (occurrence: None)
  Receive Date: 20100614
  Receipt Date: 20100602
  Transmission Date: 20101027
  Serious: Yes (Life-Threatening)
  Sender: FDA-Public Use
  Company Number: NL-ELI_LILLY_AND_COMPANY-NL201003008246

PATIENT
  Sex: Male

DRUGS (2)
  1. CYMBALTA [Suspect]
     Indication: FIBROMYALGIA
     Dosage: 60 MG, UNKNOWN
     Route: 065
     Dates: start: 20100101
  2. KETAMIN [Concomitant]
     Indication: FIBROMYALGIA
     Dosage: UNK, UNKNOWN
     Route: 042
     Dates: start: 20100317, end: 20100317

REACTIONS (5)
  - ADVERSE EVENT [None]
  - DISSOCIATION [None]
  - DYSKINESIA [None]
  - HALLUCINATION [None]
  - VOMITING [None]
